FAERS Safety Report 20494147 (Version 1)
Quarter: 2022Q1

REPORT INFORMATION
  Report Type: Spontaneous
  Country: IN (occurrence: IN)
  Receive Date: 20220221
  Receipt Date: 20220221
  Transmission Date: 20220423
  Serious: No
  Sender: FDA-Public Use
  Company Number: IN-LUPIN PHARMACEUTICALS INC.-2022-02069

PATIENT
  Age: 2 Day
  Sex: Male
  Weight: 3.3 kg

DRUGS (12)
  1. METHYLPREDNISOLONE [Suspect]
     Active Substance: METHYLPREDNISOLONE
     Indication: Multisystem inflammatory syndrome in children
     Dosage: 1 MILLIGRAM/KILOGRAM, BID
     Route: 065
  2. HUMAN IMMUNOGLOBULIN G [Suspect]
     Active Substance: HUMAN IMMUNOGLOBULIN G
     Indication: Multisystem inflammatory syndrome in children
     Dosage: 2 GRAM PER KILOGRAM, BID (ON DAY 2)
     Route: 065
  3. PREDNISOLONE [Suspect]
     Active Substance: PREDNISOLONE
     Indication: Multisystem inflammatory syndrome in children
     Dosage: UNK
     Route: 048
  4. AMPICILLIN [Concomitant]
     Active Substance: AMPICILLIN
     Indication: Sepsis neonatal
     Dosage: UNK
     Route: 065
  5. GENTAMICIN [Concomitant]
     Active Substance: GENTAMICIN
     Indication: Sepsis neonatal
     Dosage: UNK
     Route: 065
  6. ACETAMINOPHEN [Concomitant]
     Active Substance: ACETAMINOPHEN
     Indication: Pyrexia
     Dosage: 15 MILLIGRAM/KILOGRAM
     Route: 065
  7. SODIUM CHLORIDE [Concomitant]
     Active Substance: SODIUM CHLORIDE
     Indication: Blood pressure abnormal
     Dosage: 10 MILLIGRAM/KILOGRAM
     Route: 065
  8. DOPAMINE [Concomitant]
     Active Substance: DOPAMINE HYDROCHLORIDE
     Indication: Blood pressure abnormal
     Dosage: 10 MICROGRAM/KILOGRAM
     Route: 065
  9. PIPERACILLIN AND TAZOBACTAM [Concomitant]
     Active Substance: PIPERACILLIN SODIUM\TAZOBACTAM SODIUM
     Indication: Antibiotic therapy
     Dosage: UNK
     Route: 065
  10. NETILMICIN [Concomitant]
     Active Substance: NETILMICIN
     Indication: Antibiotic therapy
     Dosage: UNK
     Route: 065
  11. ENOXAPARIN [Concomitant]
     Active Substance: ENOXAPARIN
     Indication: Activated partial thromboplastin time prolonged
     Dosage: 1 MILLIGRAM/KILOGRAM, BID
     Route: 058
  12. ASPIRIN [Concomitant]
     Active Substance: ASPIRIN
     Indication: Activated partial thromboplastin time prolonged
     Dosage: 3 MILLIGRAM/KILOGRAM, QD
     Route: 048

REACTIONS (1)
  - Off label use [Unknown]
